FAERS Safety Report 5893140-1 (Version None)
Quarter: 2008Q3

REPORT INFORMATION
  Report Type: 
  Country: None (occurrence: None)
  Receive Date: 20080923
  Receipt Date: 20070821
  Transmission Date: 20090109
  Serious: No
  Sender: FDA-Public Use
  Company Number: US-ASTRAZENECA-2007UW20118

PATIENT
  Sex: Female

DRUGS (4)
  1. SEROQUEL [Suspect]
     Indication: SLEEP DISORDER
     Route: 048
     Dates: start: 20061201
  2. METHADONE HCL [Concomitant]
  3. LORTAB [Concomitant]
  4. DIAZEPAM [Concomitant]

REACTIONS (1)
  - MUSCULAR WEAKNESS [None]
